FAERS Safety Report 8729283 (Version 2)
Quarter: 2012Q4

REPORT INFORMATION
  Report Type: 
  Country: US (occurrence: US)
  Receive Date: 20120817
  Receipt Date: 20121105
  Transmission Date: 20130627
  Serious: Yes (Other)
  Sender: FDA-Public Use
  Company Number: US-BRISTOL-MYERS SQUIBB COMPANY-16655367

PATIENT
  Age: 72 Year
  Sex: Male

DRUGS (13)
  1. SPRYCEL [Suspect]
     Indication: LEUKAEMIA
     Dosage: 13-27Oct10, 15-25Apr12
     Route: 048
     Dates: start: 20101013, end: 20120425
  2. HYDREA [Suspect]
     Dates: start: 201105, end: 20120410
  3. FLOMAX [Concomitant]
     Dosage: Caps, at bedtime.
     Route: 048
  4. MULTIVITAMINS [Concomitant]
     Dosage: Tabs
  5. OMEGA 3 FATTY ACID [Concomitant]
     Dosage: Caps
  6. COUMADIN [Concomitant]
     Dosage: 1 df= 1-2 tabs. 5mg solr
     Route: 048
  7. CARDIZEM CD [Concomitant]
     Dosage: Caps
     Route: 048
  8. COREG [Concomitant]
     Route: 048
  9. RESTASIS [Concomitant]
     Dosage: 0.05% emul
  10. PRILOSEC [Concomitant]
     Route: 048
  11. CHONDROITIN SULFATE + GLUCOSAMINE [Concomitant]
  12. VITAMIN C [Concomitant]
  13. VITAMIN D3 [Concomitant]

REACTIONS (11)
  - Pulmonary oedema [Recovering/Resolving]
  - Pneumonia [Unknown]
  - Renal failure [Unknown]
  - Fluid retention [Unknown]
  - Influenza [Unknown]
  - Headache [Unknown]
  - Abdominal discomfort [Unknown]
  - Asthenia [Unknown]
  - Fatigue [Unknown]
  - Nausea [Unknown]
  - Myalgia [Unknown]
